FAERS Safety Report 25997439 (Version 1)
Quarter: 2025Q4

REPORT INFORMATION
  Report Type: Spontaneous
  Country: CN (occurrence: CN)
  Receive Date: 20251104
  Receipt Date: 20251104
  Transmission Date: 20260118
  Serious: Yes (Life-Threatening)
  Sender: JOHNSON AND JOHNSON
  Company Number: CN-BAYER-2025A144906

PATIENT
  Age: 97 Year
  Sex: Female
  Weight: 43 kg

DRUGS (1)
  1. XARELTO [Suspect]
     Active Substance: RIVAROXABAN
     Indication: Peripheral vein thrombosis
     Dosage: 10 MG, QD
     Route: 048
     Dates: start: 20250922, end: 20251002

REACTIONS (10)
  - Coagulopathy [Recovered/Resolved]
  - Prothrombin time prolonged [Recovered/Resolved]
  - Prothrombin time ratio increased [Recovered/Resolved]
  - Prothrombin level decreased [Recovered/Resolved]
  - Blood fibrinogen increased [Recovered/Resolved]
  - International normalised ratio increased [Recovered/Resolved]
  - Underdose [Unknown]
  - Prescribed underdose [Unknown]
  - Inappropriate schedule of product administration [Unknown]
  - Product prescribing issue [Unknown]

NARRATIVE: CASE EVENT DATE: 20250922
